FAERS Safety Report 10344658 (Version 1)
Quarter: 2014Q3

REPORT INFORMATION
  Report Type: Spontaneous
  Country: US (occurrence: None)
  Receive Date: 20140724
  Receipt Date: 20140724
  Transmission Date: 20150326
  Serious: Yes (Other)
  Sender: FDA-Public Use
  Company Number: None

PATIENT
  Age: 72 Year
  Sex: Male
  Weight: 79.38 kg

DRUGS (2)
  1. PANTOPRAZOLE [Suspect]
     Active Substance: PANTOPRAZOLE SODIUM
     Indication: EROSIVE OESOPHAGITIS
     Dosage: 40MG, ONCE DAILY, TAKEN BY MOUTH
     Route: 048
     Dates: start: 20140527, end: 20140710
  2. PANTOPRAZOLE [Suspect]
     Active Substance: PANTOPRAZOLE SODIUM
     Indication: OESOPHAGEAL PAIN
     Dosage: 40MG, ONCE DAILY, TAKEN BY MOUTH
     Route: 048
     Dates: start: 20140527, end: 20140710

REACTIONS (4)
  - Neck pain [None]
  - Loss of consciousness [None]
  - Dyspnoea [None]
  - Cardiac disorder [None]

NARRATIVE: CASE EVENT DATE: 20140710
